FAERS Safety Report 25272277 (Version 1)
Quarter: 2025Q2

REPORT INFORMATION
  Report Type: Spontaneous
  Country: JP (occurrence: JP)
  Receive Date: 20250506
  Receipt Date: 20250506
  Transmission Date: 20250717
  Serious: Yes (Hospitalization, Other)
  Sender: DR REDDYS
  Company Number: JP-RDY-JPN/2025/05/006538

PATIENT
  Age: 63 Year
  Sex: Female

DRUGS (5)
  1. AZACITIDINE [Suspect]
     Active Substance: AZACITIDINE
     Indication: Myelodysplastic syndrome
  2. VENETOCLAX [Suspect]
     Active Substance: VENETOCLAX
     Indication: Myelodysplastic syndrome
  3. IDARUBICIN [Suspect]
     Active Substance: IDARUBICIN
     Indication: Myelodysplastic syndrome
  4. CYTARABINE [Suspect]
     Active Substance: CYTARABINE
     Indication: Myelodysplastic syndrome
  5. PREDNISOLONE [Suspect]
     Active Substance: PREDNISOLONE
     Indication: Organising pneumonia

REACTIONS (2)
  - Neutropenia [Recovered/Resolved]
  - Encephalitis enteroviral [Unknown]
